FAERS Safety Report 4328016-4 (Version None)
Quarter: 2004Q1

REPORT INFORMATION
  Report Type: 
  Country: None (occurrence: None)
  Receive Date: 20040330
  Receipt Date: 20040317
  Transmission Date: 20041129
  Serious: Yes (Hospitalization)
  Sender: FDA-Public Use
  Company Number: FLUV00304000518

PATIENT
  Age: 30 Year
  Sex: Male

DRUGS (13)
  1. DEPROMEL 25 (FLUVOXAMINE MALEATE) [Suspect]
     Indication: BORDERLINE PERSONALITY DISORDER
     Dosage: DAILY PO, 150 MG DAILY PO
     Route: 048
     Dates: start: 20030516, end: 20031215
  2. DEPROMEL 25 (FLUVOXAMINE MALEATE) [Suspect]
     Indication: DEPRESSION
     Dosage: DAILY PO, 150 MG DAILY PO
     Route: 048
     Dates: start: 20030516, end: 20031215
  3. DEPROMEL 25 (FLUVOXAMINE MALEATE) [Suspect]
     Indication: BORDERLINE PERSONALITY DISORDER
     Dosage: DAILY PO, 150 MG DAILY PO
     Route: 048
     Dates: start: 20000101
  4. DEPROMEL 25 (FLUVOXAMINE MALEATE) [Suspect]
     Indication: DEPRESSION
     Dosage: DAILY PO, 150 MG DAILY PO
     Route: 048
     Dates: start: 20000101
  5. LEXOTAN [Concomitant]
  6. HIRNAMIN (LEVOMEPROMAZINE) [Concomitant]
  7. AMOBAN (ZOPICLONE) [Concomitant]
  8. SILECE (FLUNITRAZEPAM) [Concomitant]
  9. AKINETON [Concomitant]
  10. PYRETHIA (PROMETAZINE HYDROCHLORIDE) [Concomitant]
  11. RITALIN [Concomitant]
  12. BROVARIN (BROMISOVAL) [Concomitant]
  13. AMITRIPTYLINE HYDROCHLORIDE [Concomitant]

REACTIONS (16)
  - ABNORMAL BEHAVIOUR [None]
  - AUTONOMIC NERVOUS SYSTEM IMBALANCE [None]
  - BLOOD ALKALINE PHOSPHATASE INCREASED [None]
  - BLOOD CREATINE PHOSPHOKINASE INCREASED [None]
  - BLOOD UREA INCREASED [None]
  - BODY TEMPERATURE INCREASED [None]
  - C-REACTIVE PROTEIN INCREASED [None]
  - DELIRIUM [None]
  - DRUG ERUPTION [None]
  - DRUG WITHDRAWAL SYNDROME [None]
  - EOSINOPHIL COUNT DECREASED [None]
  - LYMPHOCYTE COUNT DECREASED [None]
  - MONOCYTE COUNT DECREASED [None]
  - NAUSEA [None]
  - NEUTROPHIL COUNT INCREASED [None]
  - PROTEIN URINE PRESENT [None]
